FAERS Safety Report 15976405 (Version 1)
Quarter: 2019Q1

REPORT INFORMATION
  Report Type: Report from Study
  Country: US (occurrence: US)
  Receive Date: 20190218
  Receipt Date: 20190218
  Transmission Date: 20190418
  Serious: Yes (Hospitalization)
  Sender: FDA-Public Use
  Company Number: US-GILEAD-2019-0387869

PATIENT
  Age: 75 Year
  Sex: Male

DRUGS (18)
  1. DOXYCYCLINE HYCLATE. [Concomitant]
     Active Substance: DOXYCYCLINE HYCLATE
  2. LANTUS [Concomitant]
     Active Substance: INSULIN GLARGINE
  3. ROZEREM [Concomitant]
     Active Substance: RAMELTEON
  4. AMBRISENTAN [Suspect]
     Active Substance: AMBRISENTAN
     Indication: PULMONARY HYPERTENSION
     Dosage: 5 MG, QD
     Route: 065
     Dates: start: 20181114
  5. PIOGLITAZONE. [Concomitant]
     Active Substance: PIOGLITAZONE
  6. TRULICITY [Concomitant]
     Active Substance: DULAGLUTIDE
  7. HUMALOG [Concomitant]
     Active Substance: INSULIN LISPRO
  8. ANORO ELLIPTA [Concomitant]
     Active Substance: UMECLIDINIUM BROMIDE\VILANTEROL TRIFENATATE
  9. ATORVASTATIN [Concomitant]
     Active Substance: ATORVASTATIN
  10. EZETIMIBE. [Concomitant]
     Active Substance: EZETIMIBE
  11. TAMSULOSIN [Concomitant]
     Active Substance: TAMSULOSIN
  12. XARELTO [Concomitant]
     Active Substance: RIVAROXABAN
  13. METOLAZONE. [Concomitant]
     Active Substance: METOLAZONE
  14. METFORMIN [Concomitant]
     Active Substance: METFORMIN HYDROCHLORIDE
  15. PANTOPRAZOLE [Concomitant]
     Active Substance: PANTOPRAZOLE
  16. BUMETANIDE. [Concomitant]
     Active Substance: BUMETANIDE
  17. SILDENAFIL. [Concomitant]
     Active Substance: SILDENAFIL
  18. MODAFINIL. [Concomitant]
     Active Substance: MODAFINIL

REACTIONS (2)
  - Product use issue [Not Recovered/Not Resolved]
  - Lung disorder [Recovered/Resolved]

NARRATIVE: CASE EVENT DATE: 20190207
